FAERS Safety Report 24735262 (Version 2)
Quarter: 2024Q4

REPORT INFORMATION
  Report Type: Spontaneous
  Country: PL (occurrence: PL)
  Receive Date: 20241215
  Receipt Date: 20241223
  Transmission Date: 20250114
  Serious: Yes (Death, Disabling, Other)
  Sender: Haleon PLC
  Company Number: PL-GLAXOSMITHKLINE-PL2020046416

PATIENT
  Age: 61 Year
  Sex: Male

DRUGS (48)
  1. DICLOFENAC SODIUM [Suspect]
     Active Substance: DICLOFENAC SODIUM
     Indication: Pain
     Dosage: 100 MG, BID
  2. DICLOFENAC SODIUM [Suspect]
     Active Substance: DICLOFENAC SODIUM
     Dosage: UNK?START DATE: 2014-01
  3. ACETAMINOPHEN [Suspect]
     Active Substance: ACETAMINOPHEN
     Indication: Pain
     Dosage: 375 MG, ADHOC UPTO 4 TIMES DAILY
  4. FENTANYL [Suspect]
     Active Substance: FENTANYL
     Indication: Cancer pain
     Dosage: 200 UG, 3 TO 4 TIMES A DAY??FIRST ADMIN DATE: 2016?LAST ADMIN DATE: 2016
     Route: 062
  5. FENTANYL [Suspect]
     Active Substance: FENTANYL
     Indication: Pain
     Dosage: 200 UG, QH
     Route: 002
  6. FENTANYL [Suspect]
     Active Substance: FENTANYL
     Dosage: 50 ?G (Q72H)?FIRST ADMIN DATE: 2016-03?LAST ADMIN DATE: 2016
     Route: 065
  7. FENTANYL [Suspect]
     Active Substance: FENTANYL
     Dosage: 50 ?G (QH)?FIRST ADMIN DATE: 2016?LAST ADMIN DATE: 2016
     Route: 062
  8. FENTANYL [Suspect]
     Active Substance: FENTANYL
     Dosage: 50 MICROGRAM, Q1HR
     Route: 062
  9. FENTANYL [Suspect]
     Active Substance: FENTANYL
     Dosage: UNK (50 MG/H, EVERY 3 DAYS)
     Route: 062
  10. FENTANYL [Suspect]
     Active Substance: FENTANYL
     Dosage: 400 MICROGRAM/3-4 TIMES DAILY
     Route: 002
  11. FENTANYL [Suspect]
     Active Substance: FENTANYL
     Dosage: 200 MICROGRAM/3-4 TIMES DAILY
     Route: 048
  12. METAMIZOLE [Concomitant]
     Active Substance: METAMIZOLE
     Indication: Product used for unknown indication
     Dosage: 2 DF, UP TO 4 TIMES PER DAY
     Route: 065
  13. BICALUTAMIDE [Suspect]
     Active Substance: BICALUTAMIDE
     Indication: Prostate cancer
     Dosage: 50 MG, QD?FIRST ADMIN DATE: 2016-03
     Route: 065
  14. ACETAMINOPHEN\TRAMADOL [Suspect]
     Active Substance: ACETAMINOPHEN\TRAMADOL
     Indication: Analgesic therapy
     Dosage: START DATE: 2014-01
  15. ACETAMINOPHEN\TRAMADOL [Suspect]
     Active Substance: ACETAMINOPHEN\TRAMADOL
     Dosage: UNK UNK, AS NEEDED, UP TO FOUR TIMES A DAY
     Route: 065
  16. ACETAMINOPHEN\TRAMADOL [Suspect]
     Active Substance: ACETAMINOPHEN\TRAMADOL
     Dosage: UNK UNK, AS NEEDED (75/650 MG/MG), UP TO 4 TIMES A DAY
     Route: 065
  17. DOCETAXEL [Suspect]
     Active Substance: DOCETAXEL
     Indication: Chemotherapy
     Dosage: 50 MG/M2, 8 ADMINISTRATIONS
     Route: 065
  18. DOCETAXEL [Suspect]
     Active Substance: DOCETAXEL
     Indication: Hormone-refractory prostate cancer
     Dosage: UNK
     Route: 065
  19. DOCETAXEL [Suspect]
     Active Substance: DOCETAXEL
     Indication: Prostate cancer
  20. DENOSUMAB [Suspect]
     Active Substance: DENOSUMAB
     Indication: Prostate cancer
     Dosage: 120 MG (EVERY 28 DAYS)?FIRST ADMIN DATE: 2016-03
     Route: 058
  21. PREGABALIN [Concomitant]
     Active Substance: PREGABALIN
     Indication: Product used for unknown indication
     Dosage: 0.15 G, QD
     Route: 065
  22. PREGABALIN [Concomitant]
     Active Substance: PREGABALIN
     Dosage: 0.15 G, BID
     Route: 065
  23. NIMESULIDE [Concomitant]
     Active Substance: NIMESULIDE
     Indication: Product used for unknown indication
     Dosage: UNK, 1-0-1
  24. NIMESULIDE [Concomitant]
     Active Substance: NIMESULIDE
     Dosage: UNK UNK, BID (1-0-1)
     Route: 065
  25. KETOPROFEN [Suspect]
     Active Substance: KETOPROFEN
     Indication: Pain
     Dosage: 100 MG, BID?FIRST ADMIN DATE: 2016-03
     Route: 065
  26. KETOPROFEN [Suspect]
     Active Substance: KETOPROFEN
     Dosage: 200 MG, QD?FIRST ADMIN DATE: 2016-05
     Route: 065
  27. GABAPENTIN [Suspect]
     Active Substance: GABAPENTIN
     Indication: Pain
     Dosage: 900 MG
     Route: 065
  28. GABAPENTIN [Suspect]
     Active Substance: GABAPENTIN
     Dosage: 150 MG, QD
     Route: 065
  29. GABAPENTIN [Suspect]
     Active Substance: GABAPENTIN
     Dosage: 0.3 G, TID?START: 2016-03 AND LAST ADMIN DATE: 2016
     Route: 065
  30. GABAPENTIN [Suspect]
     Active Substance: GABAPENTIN
     Dosage: 300 MILLIGRAM
     Route: 065
  31. IRON [Concomitant]
     Active Substance: IRON
     Indication: Product used for unknown indication
     Dosage: UNK
     Route: 065
  32. IRON [Concomitant]
     Active Substance: IRON
     Dosage: UNK
     Route: 065
  33. IRON [Concomitant]
     Active Substance: IRON
     Dosage: UNK
     Route: 065
  34. MORPHINE SULFATE [Suspect]
     Active Substance: MORPHINE SULFATE
     Indication: Cancer pain
     Dosage: 0.02 G, 4X PER DAY, (FAST-RELEASE )?FIRST ADMIN DATE: 2016-03
     Route: 065
  35. MORPHINE SULFATE [Suspect]
     Active Substance: MORPHINE SULFATE
     Indication: Pain
     Dosage: 0.02 G, QID (FAST-RELEASE)?FIRST ADMIN DATE: 2016-03
     Route: 048
  36. MORPHINE SULFATE [Suspect]
     Active Substance: MORPHINE SULFATE
     Dosage: 20 MG?FIRST ADMIN DATE: 2016-03
     Route: 048
  37. LEUPROLIDE ACETATE [Suspect]
     Active Substance: LEUPROLIDE ACETATE
     Indication: Prostate cancer
     Dosage: UNK, Q3MO, ONCE IN 3 MONTHS
  38. DEXKETOPROFEN [Concomitant]
     Active Substance: DEXKETOPROFEN
     Indication: Product used for unknown indication
     Dosage: 1 DF, UP TO 3 TIMES PER DAY
     Route: 065
  39. TRAMADOL [Suspect]
     Active Substance: TRAMADOL
     Indication: Pain
     Dosage: 37.5 MG, ADHOC UPTO 4 TIMES DAILY
  40. VITAMIN D3 [Concomitant]
     Active Substance: CHOLECALCIFEROL
     Indication: Product used for unknown indication
     Dosage: 4000 INTERNATIONAL UNIT, QD?FIRST ADMIN DATE: 2016-03
     Route: 005
  41. MORPHINE [Concomitant]
     Active Substance: MORPHINE
     Indication: Pain
     Dosage: 20 MILLIGRAM
     Route: 065
  42. MORPHINE [Concomitant]
     Active Substance: MORPHINE
     Indication: Cancer pain
  43. TAPENTADOL HYDROCHLORIDE [Concomitant]
     Active Substance: TAPENTADOL HYDROCHLORIDE
     Indication: Polyneuropathy
     Dosage: 150 MG, QD
     Route: 065
  44. TAPENTADOL HYDROCHLORIDE [Concomitant]
     Active Substance: TAPENTADOL HYDROCHLORIDE
     Dosage: 100 MG, QD
     Route: 065
  45. TAPENTADOL HYDROCHLORIDE [Concomitant]
     Active Substance: TAPENTADOL HYDROCHLORIDE
     Dosage: 0.1 MG, QD (0.05 G, 2X PER DAY (SLOW-RELEASE)
     Route: 065
  46. TAPENTADOL HYDROCHLORIDE [Concomitant]
     Active Substance: TAPENTADOL HYDROCHLORIDE
     Dosage: 75 MG
     Route: 065
  47. ABIRATERONE [Concomitant]
     Active Substance: ABIRATERONE\ABIRATERONE ACETATE
     Indication: Product used for unknown indication
     Dosage: UNK?START: 2014-03
     Route: 065
  48. LEUPROLIDE ACETATE [Suspect]
     Active Substance: LEUPROLIDE ACETATE
     Indication: Hormone therapy
     Dosage: UNK, EVERY SIX MONTHS

REACTIONS (21)
  - Polyneuropathy [Fatal]
  - Decreased appetite [Fatal]
  - Drug ineffective [Fatal]
  - Malignant neoplasm progression [Unknown]
  - Dermatitis allergic [Fatal]
  - Metastases to bone [Unknown]
  - Allodynia [Fatal]
  - Pain [Unknown]
  - Constipation [Fatal]
  - Neuropathy peripheral [Not Recovered/Not Resolved]
  - Polyneuropathy in malignant disease [Unknown]
  - Product use in unapproved indication [Unknown]
  - Toxicity to various agents [Recovered/Resolved]
  - Anaemia [Unknown]
  - Hyperaesthesia [Recovered/Resolved]
  - Metastases to lung [Unknown]
  - Drug dependence [Unknown]
  - Chronic kidney disease [Fatal]
  - Confusional state [Fatal]
  - Quality of life decreased [Fatal]
  - Prostate cancer [Unknown]
